FAERS Safety Report 4552902-3 (Version None)
Quarter: 2005Q1

REPORT INFORMATION
  Report Type: 
  Country: None (occurrence: None)
  Receive Date: 20050114
  Receipt Date: 20050105
  Transmission Date: 20050727
  Serious: Yes (Hospitalization)
  Sender: FDA-Public Use
  Company Number: JP-JNJFOC-20050100615

PATIENT
  Age: 60 Year
  Sex: Male

DRUGS (13)
  1. OFLOCET [Suspect]
     Indication: PNEUMONIA LEGIONELLA
     Route: 042
  2. RULID [Concomitant]
     Route: 049
  3. ROVAMYCIN [Concomitant]
     Route: 042
  4. ZITHROMAX [Concomitant]
     Route: 049
  5. SUSTIVA [Concomitant]
     Route: 065
  6. KALETRA [Concomitant]
     Route: 049
  7. KALETRA [Concomitant]
     Route: 049
  8. VIREAD [Concomitant]
     Route: 065
  9. PLAVIX [Concomitant]
     Route: 049
  10. RENITEC [Concomitant]
     Route: 065
  11. AMLOR [Concomitant]
     Route: 049
  12. ESIDRIX [Concomitant]
     Route: 065
  13. FONZYLANE [Concomitant]
     Route: 065

REACTIONS (7)
  - ALANINE AMINOTRANSFERASE INCREASED [None]
  - ASPARTATE AMINOTRANSFERASE INCREASED [None]
  - BLOOD ALKALINE PHOSPHATASE INCREASED [None]
  - BLOOD BILIRUBIN INCREASED [None]
  - BLOOD CREATINE PHOSPHOKINASE INCREASED [None]
  - CHOLESTASIS [None]
  - GAMMA-GLUTAMYLTRANSFERASE INCREASED [None]
